FAERS Safety Report 9761661 (Version 1)
Quarter: 2013Q4

REPORT INFORMATION
  Report Type: Spontaneous
  Country: FR (occurrence: FR)
  Receive Date: 20131216
  Receipt Date: 20131216
  Transmission Date: 20140711
  Serious: Yes (Hospitalization)
  Sender: FDA-Public Use
  Company Number: FR-ACTAVIS-2013-22638

PATIENT
  Age: 59 Year
  Sex: Male

DRUGS (4)
  1. VALACICLOVIR [Suspect]
     Indication: PRODUCT USED FOR UNKNOWN INDICATION
     Dosage: 500 MG, DAILY
     Route: 048
     Dates: start: 20130905
  2. VFEND [Suspect]
     Indication: BRONCHOPULMONARY ASPERGILLOSIS
     Dosage: 200 MG, BID
     Route: 048
     Dates: start: 20130718
  3. REVOLADE /06086401/ [Suspect]
     Indication: THROMBOCYTOPENIA
     Dosage: 25 MG, UNK
     Route: 048
     Dates: start: 20130725
  4. CANCIDAS [Suspect]
     Indication: BRONCHOPULMONARY ASPERGILLOSIS
     Dosage: 50 MG, DAILY
     Route: 042
     Dates: start: 20130903, end: 20131017

REACTIONS (1)
  - VIIth nerve paralysis [Recovered/Resolved]
